FAERS Safety Report 8250476-7 (Version None)
Quarter: 2012Q2

REPORT INFORMATION
  Report Type: 
  Country: None (occurrence: None)
  Receive Date: 20120402
  Receipt Date: 20120402
  Transmission Date: 20120825
  Serious: Yes (Other)
  Sender: FDA-Public Use
  Company Number: None

PATIENT
  Age: 58 Year
  Sex: Male
  Weight: 72.574 kg

DRUGS (2)
  1. AVELOX [Suspect]
     Indication: BRONCHITIS
     Route: 048
     Dates: start: 20120322, end: 20120324
  2. AVELOX [Suspect]
     Indication: SINUSITIS
     Route: 048
     Dates: start: 20120322, end: 20120324

REACTIONS (3)
  - PAIN IN EXTREMITY [None]
  - INSOMNIA [None]
  - ARTHRALGIA [None]
